FAERS Safety Report 16425710 (Version 1)
Quarter: 2019Q2

REPORT INFORMATION
  Report Type: Spontaneous
  Country: US (occurrence: US)
  Receive Date: 20190613
  Receipt Date: 20190613
  Transmission Date: 20190711
  Serious: No
  Sender: FDA-Public Use
  Company Number: US-PFIZER INC-2019249180

PATIENT
  Age: 70 Year
  Sex: Female

DRUGS (1)
  1. IBRANCE [Suspect]
     Active Substance: PALBOCICLIB
     Indication: NEOPLASM MALIGNANT
     Dosage: 125 MG, CYCLIC (125MG ONCE A DAY BY MOUTH FOR 3 WEEKS THEN 1 WEEK OFF)
     Route: 048
     Dates: start: 20190509

REACTIONS (2)
  - White blood cell count decreased [Unknown]
  - Product dispensing error [Unknown]

NARRATIVE: CASE EVENT DATE: 2019
